FAERS Safety Report 6559393-1 (Version None)
Quarter: 2010Q1

REPORT INFORMATION
  Report Type: 
  Country: None (occurrence: None)
  Receive Date: 20100129
  Receipt Date: 20090901
  Transmission Date: 20100710
  Serious: No
  Sender: FDA-Public Use
  Company Number: US-ABBOTT-09P-163-0594765-00

PATIENT
  Weight: 72.64 kg

DRUGS (2)
  1. HUMIRA [Suspect]
     Indication: CROHN'S DISEASE
     Dates: start: 20090724
  2. HUMIRA [Suspect]
     Dates: start: 20090101, end: 20090501

REACTIONS (2)
  - COORDINATION ABNORMAL [None]
  - JUDGEMENT IMPAIRED [None]
